FAERS Safety Report 6213959-7 (Version None)
Quarter: 2009Q2

REPORT INFORMATION
  Report Type: 
  Country: None (occurrence: None)
  Receive Date: 20090602
  Receipt Date: 20090518
  Transmission Date: 20091009
  Serious: Yes (Hospitalization, Other)
  Sender: FDA-Public Use
  Company Number: WAES 0905FRA00083

PATIENT
  Age: 12 Year
  Sex: Female

DRUGS (7)
  1. CAP EMEND (APREPITANT) [Suspect]
     Indication: PROPHYLAXIS OF NAUSEA AND VOMITING
     Dosage: PO
     Route: 048
     Dates: start: 20090413, end: 20090414
  2. INJ ZOLEDRONATE SODIUM [Suspect]
     Indication: BONE SARCOMA
     Dosage: IV
     Route: 042
  3. METHOTREXATE [Suspect]
     Indication: BONE SARCOMA
     Dates: start: 20090413, end: 20090414
  4. CALCIUM (UNSPECIFIED) [Concomitant]
  5. CHLORPROMAZINE HC1 [Concomitant]
  6. ERGOCALCIFEROL [Concomitant]
  7. ONDANSETRON HYDROCHLORIDE [Concomitant]

REACTIONS (7)
  - ABDOMINAL PAIN [None]
  - ASTHENIA [None]
  - CELL DEATH [None]
  - DIARRHOEA [None]
  - MALAISE [None]
  - NAUSEA [None]
  - VOMITING [None]
